FAERS Safety Report 21712282 (Version 1)
Quarter: 2022Q4

REPORT INFORMATION
  Report Type: Spontaneous
  Country: None (occurrence: GR)
  Receive Date: 20221212
  Receipt Date: 20221212
  Transmission Date: 20230113
  Serious: Yes (Other)
  Sender: FDA-Public Use
  Company Number: GR-Therakind Limited-2135760

PATIENT
  Age: 31 Year
  Sex: Male

DRUGS (3)
  1. METHOTREXATE SODIUM [Suspect]
     Active Substance: METHOTREXATE SODIUM
     Indication: Crohn^s disease
     Route: 065
  2. REMICADE [Suspect]
     Active Substance: INFLIXIMAB
  3. AZATHIOPRINE [Concomitant]
     Active Substance: AZATHIOPRINE

REACTIONS (8)
  - Colectomy [Unknown]
  - Therapeutic response decreased [Unknown]
  - Off label use [Unknown]
  - Drug intolerance [Unknown]
  - Anal stenosis [Unknown]
  - Product use in unapproved indication [Unknown]
  - Ileal stenosis [Unknown]
  - Jejunal stenosis [Unknown]
